FAERS Safety Report 5734545-9 (Version None)
Quarter: 2008Q2

REPORT INFORMATION
  Report Type: 
  Country: None (occurrence: None)
  Receive Date: 20080512
  Receipt Date: 20080211
  Transmission Date: 20081010
  Serious: Yes (Hospitalization)
  Sender: FDA-Public Use
  Company Number: PHBS2008CA04283

PATIENT
  Age: 55 Year
  Sex: Female

DRUGS (6)
  1. PREXIGE [Suspect]
     Indication: OSTEOARTHRITIS
     Dosage: 100 MG, QD
     Route: 048
     Dates: start: 20070807
  2. CYCLOSPORINE [Suspect]
     Indication: PSORIASIS
     Dosage: 100 MG, QD
     Route: 048
     Dates: start: 20070522, end: 20070813
  3. GABAPENTIN [Concomitant]
     Dosage: 800 MG, TID
  4. WELLBUTRIN [Concomitant]
     Dosage: 300 MG, QD
  5. AMITRIPTLINE HCL [Concomitant]
     Dosage: 10 MG, TID
  6. EFFEXOR XR [Concomitant]
     Dosage: 150 MG, QD

REACTIONS (4)
  - DYSARTHRIA [None]
  - DYSPNOEA [None]
  - MICTURITION DISORDER [None]
  - PARALYSIS [None]
